FAERS Safety Report 14973673 (Version 1)
Quarter: 2018Q2

REPORT INFORMATION
  Report Type: Spontaneous
  Country: US (occurrence: US)
  Receive Date: 20180605
  Receipt Date: 20180605
  Transmission Date: 20180711
  Serious: No
  Sender: FDA-Public Use
  Company Number: US-TAKEDA-2018MPI006341

PATIENT
  Age: 71 Year
  Sex: Female
  Weight: 86 kg

DRUGS (2)
  1. VELCADE [Suspect]
     Active Substance: BORTEZOMIB
     Indication: PLASMA CELL MYELOMA
     Dosage: 2.3 MG, UNK
     Route: 058
     Dates: start: 20170308
  2. VELCADE [Suspect]
     Active Substance: BORTEZOMIB
     Dosage: 2.4 MG, UNK
     Route: 058
     Dates: start: 201708

REACTIONS (2)
  - Weight increased [Unknown]
  - Drug dose omission [Unknown]

NARRATIVE: CASE EVENT DATE: 201708
